FAERS Safety Report 11580862 (Version 1)
Quarter: 2015Q4

REPORT INFORMATION
  Report Type: Spontaneous
  Country: US (occurrence: US)
  Receive Date: 20151001
  Receipt Date: 20151001
  Transmission Date: 20160304
  Serious: No
  Sender: FDA-Public Use
  Company Number: US-GLENMARK PHARMACEUTICALS INC, USA.-2015GMK014202

PATIENT
  Sex: Male

DRUGS (1)
  1. CLOTRIMAZOLE CREAM [Suspect]
     Active Substance: CLOTRIMAZOLE
     Indication: ONYCHOMYCOSIS
     Dosage: ONE OR TWO APPLICATION, PRN
     Route: 061
     Dates: start: 201501

REACTIONS (1)
  - Drug ineffective [Unknown]
